FAERS Safety Report 20697368 (Version 1)
Quarter: 2022Q2

REPORT INFORMATION
  Report Type: Spontaneous
  Country: US (occurrence: US)
  Receive Date: 20220411
  Receipt Date: 20220411
  Transmission Date: 20220721
  Serious: No
  Sender: FDA-Public Use
  Company Number: US-PFIZER INC-2021703030

PATIENT
  Age: 55 Year
  Sex: Male
  Weight: 117.93 kg

DRUGS (1)
  1. PHENYTOIN [Suspect]
     Active Substance: PHENYTOIN
     Indication: Seizure
     Dosage: 500 MG, DAILY

REACTIONS (1)
  - Drug ineffective [Unknown]
